FAERS Safety Report 18629663 (Version 1)
Quarter: 2020Q4

REPORT INFORMATION
  Report Type: Spontaneous
  Country: US (occurrence: US)
  Receive Date: 20201217
  Receipt Date: 20201217
  Transmission Date: 20210114
  Serious: No
  Sender: FDA-Public Use
  Company Number: US-TEVA-2020-US-1858666

PATIENT
  Sex: Male

DRUGS (3)
  1. BETAMETHASONE DIPROPIONATE (AUGMENTED) TEVA [Suspect]
     Active Substance: BETAMETHASONE DIPROPIONATE
     Indication: ONYCHOMYCOSIS
     Route: 065
  2. LOTRIMIN ULTRA [Suspect]
     Active Substance: BUTENAFINE HYDROCHLORIDE
     Indication: ONYCHOMYCOSIS
     Dosage: APPLY THE LOTRIMIN ULTRA IN THE AFTERNOON
     Route: 065
  3. MUPIROCIN TEVA [Suspect]
     Active Substance: MUPIROCIN
     Indication: ONYCHOMYCOSIS
     Dosage: APPLY AFFECTED SITE TWICE A DAY, ONCE IN THE MORNING AND ONCE IN THE EVENING
     Route: 065

REACTIONS (7)
  - Product use in unapproved indication [Unknown]
  - Application site erythema [Unknown]
  - Application site rash [Unknown]
  - Skin reaction [Unknown]
  - Product prescribing error [Unknown]
  - Application site swelling [Unknown]
  - Nail disorder [Unknown]
